FAERS Safety Report 7621341-0 (Version None)
Quarter: 2011Q3

REPORT INFORMATION
  Report Type: 
  Country: None (occurrence: None)
  Receive Date: 20110719
  Receipt Date: 20110715
  Transmission Date: 20111222
  Serious: Yes (Other)
  Sender: FDA-Public Use
  Company Number: SE-BAYER-2011-061615

PATIENT
  Sex: Female

DRUGS (3)
  1. UNKNOWN DRUG [Concomitant]
     Indication: ASTHMA
  2. MIRENA [Suspect]
     Indication: GENITAL HAEMORRHAGE
     Dosage: UNK
     Route: 015
     Dates: start: 20110525
  3. MIRENA [Suspect]
     Indication: DYSMENORRHOEA

REACTIONS (3)
  - GENITAL HAEMORRHAGE [None]
  - COITAL BLEEDING [None]
  - DYSPAREUNIA [None]
